FAERS Safety Report 11639118 (Version 1)
Quarter: 2015Q4

REPORT INFORMATION
  Report Type: Report from Study
  Country: US (occurrence: US)
  Receive Date: 20151019
  Receipt Date: 20151019
  Transmission Date: 20160304
  Serious: No
  Sender: FDA-Public Use
  Company Number: US-AMGEN-USASL2015106151

PATIENT
  Age: 46 Year
  Sex: Female

DRUGS (1)
  1. ENBREL [Suspect]
     Active Substance: ETANERCEPT
     Indication: RHEUMATOID ARTHRITIS
     Dosage: 50 MG, UNK
     Route: 065
     Dates: start: 20130301

REACTIONS (6)
  - Wrong technique in product usage process [Unknown]
  - Fall [Unknown]
  - Incorrect product storage [Unknown]
  - Ligament sprain [Unknown]
  - Furuncle [Unknown]
  - Nasopharyngitis [Unknown]
